FAERS Safety Report 5253279-0 (Version None)
Quarter: 2007Q1

REPORT INFORMATION
  Report Type: 
  Country: None (occurrence: None)
  Receive Date: 20070301
  Receipt Date: 20070220
  Transmission Date: 20070707
  Serious: Yes (Other)
  Sender: FDA-Public Use
  Company Number: 2007PK00498

PATIENT
  Age: 50 Year
  Sex: Female

DRUGS (1)
  1. ARIMIDEX [Suspect]
     Indication: BREAST CANCER FEMALE
     Route: 048

REACTIONS (3)
  - ABDOMINAL DISCOMFORT [None]
  - ARTHRALGIA [None]
  - HYPERTENSIVE CRISIS [None]
